FAERS Safety Report 6528211-X (Version None)
Quarter: 2010Q1

REPORT INFORMATION
  Report Type: 
  Country: None (occurrence: None)
  Receive Date: 20100106
  Receipt Date: 20091231
  Transmission Date: 20100710
  Serious: No
  Sender: FDA-Public Use
  Company Number: US-BAYER-201010033NA

PATIENT
  Age: 23 Year
  Sex: Female

DRUGS (1)
  1. MIRENA [Suspect]
     Indication: CONTRACEPTION
     Route: 015
     Dates: start: 20050112

REACTIONS (8)
  - ABDOMINAL DISTENSION [None]
  - ABDOMINAL PAIN LOWER [None]
  - AMENORRHOEA [None]
  - BACK PAIN [None]
  - BREAST TENDERNESS [None]
  - DYSPEPSIA [None]
  - FATIGUE [None]
  - PREGNANCY WITH CONTRACEPTIVE DEVICE [None]
